FAERS Safety Report 4326435-3 (Version None)
Quarter: 2004Q1

REPORT INFORMATION
  Report Type: 
  Country: None (occurrence: None)
  Receive Date: 20040323
  Receipt Date: 20031210
  Transmission Date: 20041129
  Serious: Yes (Hospitalization)
  Sender: FDA-Public Use
  Company Number: M03-341-184

PATIENT
  Age: 70 Year
  Sex: Female
  Weight: 42 kg

DRUGS (2)
  1. VELCADE [Suspect]
     Indication: MULTIPLE MYELOMA
     Dosage: 1.3 MG/M2:INTRAVENOUS BOLUS
     Route: 040
     Dates: start: 20031027, end: 20031126
  2. THALOMID [Concomitant]

REACTIONS (1)
  - BLOOD POTASSIUM DECREASED [None]
